FAERS Safety Report 5664158-9 (Version None)
Quarter: 2008Q1

REPORT INFORMATION
  Report Type: 
  Country: None (occurrence: None)
  Receive Date: 20080314
  Receipt Date: 20080314
  Transmission Date: 20080703
  Serious: Yes (Death)
  Sender: FDA-Public Use
  Company Number: None

PATIENT
  Age: 79 Year
  Sex: Female
  Weight: 55.7924 kg

DRUGS (1)
  1. HEPARIN [Suspect]
     Indication: HEART VALVE REPLACEMENT
     Dosage: 15,000 UNITS
     Dates: start: 20070809, end: 20070809

REACTIONS (3)
  - GENERAL PHYSICAL HEALTH DETERIORATION [None]
  - HEPARIN-INDUCED THROMBOCYTOPENIA [None]
  - PHARMACEUTICAL PRODUCT COMPLAINT [None]
